FAERS Safety Report 16113611 (Version 2)
Quarter: 2020Q1

REPORT INFORMATION
  Report Type: Spontaneous
  Country: US (occurrence: US)
  Receive Date: 20190325
  Receipt Date: 20200327
  Transmission Date: 20200409
  Serious: No
  Sender: FDA-Public Use
  Company Number: US-ALLERGAN-1846383US

PATIENT
  Age: 62 Year
  Sex: Female

DRUGS (1)
  1. LATISSE [Suspect]
     Active Substance: BIMATOPROST
     Indication: GROWTH OF EYELASHES
     Dosage: 2-3 TIMES WEEKLY, QHS
     Route: 061
     Dates: start: 20190815

REACTIONS (5)
  - Therapy cessation [Unknown]
  - Inappropriate schedule of product administration [Unknown]
  - Therapeutic product ineffective [Unknown]
  - Product packaging quantity issue [Unknown]
  - Hair growth abnormal [Unknown]
